FAERS Safety Report 6666315-1 (Version None)
Quarter: 2010Q2

REPORT INFORMATION
  Report Type: 
  Country: None (occurrence: None)
  Receive Date: 20100402
  Receipt Date: 20100325
  Transmission Date: 20101027
  Serious: Yes (Death)
  Sender: FDA-Public Use
  Company Number: US-ELI_LILLY_AND_COMPANY-US201003007062

PATIENT
  Age: 55 Year
  Sex: Male

DRUGS (2)
  1. ZYPREXA [Suspect]
     Indication: SCHIZOPHRENIA
     Dosage: 1 D/F, UNK
     Dates: start: 20080101
  2. ANTIHYPERTENSIVES [Concomitant]

REACTIONS (2)
  - DEATH [None]
  - METABOLIC SYNDROME [None]
